FAERS Safety Report 20967456 (Version 1)
Quarter: 2022Q2

REPORT INFORMATION
  Report Type: Spontaneous
  Country: US (occurrence: None)
  Receive Date: 20220616
  Receipt Date: 20220616
  Transmission Date: 20220721
  Serious: No
  Sender: FDA-Public Use
  Company Number: None

PATIENT
  Age: 89 Year
  Sex: Female

DRUGS (1)
  1. COSENTYX [Suspect]
     Active Substance: SECUKINUMAB
     Indication: Psoriasis
     Dosage: INJECT 300MG (2 PENS) SUBCUTANEOUSLY ON WEEKS 3 AND 4  AS DIRECTED?
     Route: 058
     Dates: start: 202010

REACTIONS (4)
  - Fall [None]
  - Lower limb fracture [None]
  - Urinary tract infection [None]
  - Treatment noncompliance [None]
